FAERS Safety Report 8162998-8 (Version None)
Quarter: 2012Q1

REPORT INFORMATION
  Report Type: 
  Country: None (occurrence: None)
  Receive Date: 20120224
  Receipt Date: 20120221
  Transmission Date: 20120608
  Serious: Yes (Hospitalization, Other)
  Sender: FDA-Public Use
  Company Number: US-PFIZER INC-2012035774

PATIENT
  Sex: Female
  Weight: 38.549 kg

DRUGS (10)
  1. CALCIUM [Concomitant]
     Dosage: UNK
  2. ASCORBIC ACID [Concomitant]
     Indication: ARTHRALGIA
     Dosage: UNK
  3. ASCORBIC ACID [Concomitant]
     Indication: MYALGIA
  4. SYNTHROID [Concomitant]
     Dosage: UNK
  5. PREMPRO [Concomitant]
     Dosage: UNK
  6. AMBIEN [Concomitant]
     Indication: SLEEP DISORDER
     Dosage: UNK, DAILY
  7. GENOTROPIN [Suspect]
     Indication: HYPOPITUITARISM
     Dosage: UNK
     Dates: end: 20120118
  8. GENOTROPIN [Suspect]
     Dosage: UNK
     Dates: start: 20120122
  9. VITAMIN E [Concomitant]
     Indication: ARTHRALGIA
     Dosage: UNK
  10. VITAMIN E [Concomitant]
     Indication: MYALGIA

REACTIONS (6)
  - SURGERY [None]
  - IMPAIRED DRIVING ABILITY [None]
  - ACTIVITIES OF DAILY LIVING IMPAIRED [None]
  - HYPERSENSITIVITY [None]
  - HERNIA [None]
  - MUSCLE SPASMS [None]
